FAERS Safety Report 6734919-3 (Version None)
Quarter: 2010Q2

REPORT INFORMATION
  Report Type: 
  Country: None (occurrence: None)
  Receive Date: 20100521
  Receipt Date: 20100512
  Transmission Date: 20101027
  Serious: No
  Sender: FDA-Public Use
  Company Number: 2008BI024767

PATIENT
  Sex: Female

DRUGS (1)
  1. TYSABRI [Suspect]
     Indication: MULTIPLE SCLEROSIS
     Route: 042
     Dates: start: 20080821, end: 20081113

REACTIONS (7)
  - BODY TEMPERATURE DECREASED [None]
  - CONSTIPATION [None]
  - DIABETES MELLITUS [None]
  - HYPOAESTHESIA [None]
  - MEMORY IMPAIRMENT [None]
  - TRIGEMINAL NEURALGIA [None]
  - VISUAL FIELD DEFECT [None]
